FAERS Safety Report 5979935-4 (Version None)
Quarter: 2008Q4

REPORT INFORMATION
  Report Type: 
  Country: None (occurrence: None)
  Receive Date: 20081205
  Receipt Date: 20081202
  Transmission Date: 20090506
  Serious: Yes (Other)
  Sender: FDA-Public Use
  Company Number: US-BRISTOL-MYERS SQUIBB COMPANY-14394233

PATIENT
  Age: 61 Year
  Sex: Female

DRUGS (3)
  1. BARACLUDE [Suspect]
     Indication: HEPATITIS B
     Route: 048
     Dates: start: 20060901
  2. PROCARDIA [Concomitant]
  3. LIPITOR [Concomitant]

REACTIONS (1)
  - HEPATIC NEOPLASM MALIGNANT [None]
